FAERS Safety Report 6116433-1 (Version None)
Quarter: 2009Q1

REPORT INFORMATION
  Report Type: 
  Country: None (occurrence: None)
  Receive Date: 20090314
  Receipt Date: 20081222
  Transmission Date: 20090719
  Serious: No
  Sender: FDA-Public Use
  Company Number: US-ABBOTT-08P-163-0494226-00

PATIENT
  Sex: Male
  Weight: 89.892 kg

DRUGS (11)
  1. HUMIRA [Suspect]
     Indication: RHEUMATOID ARTHRITIS
     Route: 058
     Dates: start: 20080901, end: 20081208
  2. NIFEDIPINE [Concomitant]
     Indication: HYPERTENSION
     Route: 048
  3. HYDROXYCHLOROQUIN [Concomitant]
     Indication: RHEUMATOID ARTHRITIS
     Route: 048
  4. PRED [Concomitant]
     Indication: RHEUMATOID ARTHRITIS
     Route: 048
  5. ASPIRIN [Concomitant]
     Indication: ANTICOAGULANT THERAPY
     Route: 048
     Dates: start: 20070101
  6. ASPIRIN [Concomitant]
     Indication: RESPIRATORY DISORDER
  7. COMBIVENT [Concomitant]
     Indication: RESPIRATORY DISORDER
     Dosage: TWICE DAILY
     Route: 055
     Dates: start: 20070101
  8. METHOTREXATE [Concomitant]
     Indication: RHEUMATOID ARTHRITIS
     Route: 048
  9. VICODIN [Concomitant]
     Indication: PAIN
     Dosage: 5/500
     Route: 048
  10. FOLIC ACID [Concomitant]
     Indication: VITAMIN SUPPLEMENTATION
     Route: 048
  11. CYCLOBENZAPRINE [Concomitant]
     Indication: RHEUMATOID ARTHRITIS
     Dosage: AS NEEDED AT NIGHT
     Route: 048

REACTIONS (2)
  - ERYTHEMA [None]
  - LOCALISED INFECTION [None]
